FAERS Safety Report 5145731-3 (Version None)
Quarter: 2006Q4

REPORT INFORMATION
  Report Type: 
  Country: None (occurrence: None)
  Receive Date: 20061102
  Receipt Date: 20061023
  Transmission Date: 20070319
  Serious: Yes (Other)
  Sender: FDA-Public Use
  Company Number: 2006130715

PATIENT
  Age: 83 Year
  Sex: Male

DRUGS (4)
  1. SOLU-MEDROL [Suspect]
     Dosage: 240 MG, INTRAVENOUS
     Route: 042
     Dates: start: 20061017, end: 20061001
  2. AMINOPHYLLINE [Concomitant]
  3. SOLULACT (CALCIUM CHLORIDE DIHYDRATE, POTASSIUM CHLORIDE, SODIUM CHLOR [Concomitant]
  4. MEDROL [Concomitant]

REACTIONS (1)
  - DELIRIUM [None]
